FAERS Safety Report 15516741 (Version 10)
Quarter: 2019Q3

REPORT INFORMATION
  Report Type: Report from Study
  Country: IT (occurrence: IT)
  Receive Date: 20181017
  Receipt Date: 20190711
  Transmission Date: 20191004
  Serious: Yes (Death, Hospitalization, Other)
  Sender: FDA-Public Use
  Company Number: IT-MYLANLABS-2018M1075895

PATIENT
  Age: 85 Year
  Sex: Female
  Weight: 72 kg

DRUGS (10)
  1. FUROSEMIDE. [Suspect]
     Active Substance: FUROSEMIDE
     Dosage: 75 MILLIGRAM, BID,  (150 MG, QD)
     Route: 048
     Dates: start: 20180516
  2. FUROSEMIDE. [Suspect]
     Active Substance: FUROSEMIDE
     Dosage: 375 MILLIGRAM
     Route: 048
     Dates: start: 20180814
  3. SACUBITRIL W/VALSARTAN [Suspect]
     Active Substance: SACUBITRIL\VALSARTAN
     Indication: CARDIAC FAILURE
     Dosage: UNK, CODE NOT BROKEN
     Route: 048
     Dates: start: 20160411, end: 20180131
  4. DABIGATRAN [Concomitant]
     Active Substance: DABIGATRAN
     Indication: ATRIAL FIBRILLATION
     Dosage: 110 MILLIGRAM, BID (220 MG, QD)
     Route: 048
     Dates: start: 20160321
  5. FUROSEMIDE. [Suspect]
     Active Substance: FUROSEMIDE
     Dosage: 375 MILLIGRAM
     Route: 048
     Dates: start: 20180516
  6. FUROSEMIDE. [Suspect]
     Active Substance: FUROSEMIDE
     Indication: CARDIAC FAILURE
     Dosage: 25 MILLIGRAM, BID (50 MILLIGRAM, QD)
     Route: 048
     Dates: start: 20170302, end: 20180117
  7. SACUBITRIL W/VALSARTAN [Suspect]
     Active Substance: SACUBITRIL\VALSARTAN
     Dosage: UNK, CODE NOT BROKEN
     Route: 048
     Dates: start: 20180207, end: 20180515
  8. BISOPROLOL [Concomitant]
     Active Substance: BISOPROLOL
     Indication: CARDIAC FAILURE
     Dosage: 5 MILLIGRAM, BID (10 MG, QD)
     Route: 048
     Dates: start: 20160906
  9. FUROSEMIDE. [Suspect]
     Active Substance: FUROSEMIDE
     Indication: CHRONIC KIDNEY DISEASE
     Dosage: 125 MILLIGRAM, BID, (250 MILLIGRAM QD)
     Route: 048
     Dates: start: 20180509, end: 20180515
  10. WARFARIN [Concomitant]
     Active Substance: WARFARIN
     Indication: ATRIAL FIBRILLATION
     Dosage: 2.5 MILLIGRAM, QD
     Route: 048
     Dates: start: 20180412, end: 20180509

REACTIONS (9)
  - Oedema [Recovered/Resolved]
  - Acute kidney injury [Not Recovered/Not Resolved]
  - Orthopnoea [Recovered/Resolved]
  - Anaemia [Not Recovered/Not Resolved]
  - Nausea [Recovered/Resolved]
  - Chest pain [Recovered/Resolved]
  - Vomiting [Recovered/Resolved]
  - Dyspnoea [Fatal]
  - End stage renal disease [Not Recovered/Not Resolved]

NARRATIVE: CASE EVENT DATE: 20180117
